FAERS Safety Report 8200536 (Version 4)
Quarter: 2013Q1

REPORT INFORMATION
  Report Type: Report from Study
  Country: JP (occurrence: JP)
  Receive Date: 20111026
  Receipt Date: 20130110
  Transmission Date: 20140127
  Serious: Yes (Hospitalization, Other)
  Sender: FDA-Public Use
  Company Number: JP-PFIZER INC-2011253009

PATIENT
  Age: 42 Year
  Sex: Male
  Weight: 72.3 kg

DRUGS (13)
  1. SUNITINIB MALATE [Suspect]
     Indication: RENAL CELL CARCINOMA
     Dosage: 50 MG, DAILY, 4-WEEK ON/2-WEEK OFF
     Dates: start: 20090504, end: 20101204
  2. ZOMETA [Suspect]
     Indication: RENAL CELL CARCINOMA
     Dosage: 4 MG, MONTHLY
     Route: 041
     Dates: start: 20090504, end: 20091204
  3. MAGMITT [Concomitant]
     Indication: CONSTIPATION
     Dosage: 330 MG, 3X/DAY
     Route: 048
  4. PURSENNID [Concomitant]
     Indication: CONSTIPATION
     Dosage: 24 MG, 1X/DAY
     Route: 048
     Dates: start: 20090505, end: 20090608
  5. DECADRON [Concomitant]
     Indication: RENAL CELL CARCINOMA
     Dosage: 1 MG, 1X/DAY
     Route: 048
     Dates: start: 20090518
  6. THYRADIN [Concomitant]
     Dosage: 50 UG, 1X/DAY
     Route: 048
     Dates: start: 20090522
  7. GASTER [Concomitant]
     Indication: PROPHYLAXIS
     Dosage: 20 MG, 1X/DAY
     Route: 048
     Dates: start: 20090518
  8. UREPEARL [Concomitant]
     Dosage: UNK
     Route: 061
     Dates: start: 20090527
  9. LAC B [Concomitant]
     Dosage: 1 G, 3X/DAY
     Route: 048
     Dates: start: 20090709, end: 20090711
  10. DEXAMETHASONE [Concomitant]
     Dosage: UNK
     Route: 061
     Dates: start: 20090709
  11. NAUZELIN [Concomitant]
     Dosage: 1 DF, 1X/DAY
     Route: 054
     Dates: start: 20090708, end: 20090711
  12. PRIMPERAN [Concomitant]
     Dosage: 5 MG, 1X/DAY
     Dates: start: 20090710, end: 20090711
  13. HACHIAZULE [Concomitant]
     Dosage: UNK
     Dates: start: 20090710

REACTIONS (1)
  - Osteonecrosis of jaw [Recovering/Resolving]
